FAERS Safety Report 4709430-1 (Version None)
Quarter: 2005Q3

REPORT INFORMATION
  Report Type: 
  Country: None (occurrence: None)
  Receive Date: 20050708
  Receipt Date: 20050628
  Transmission Date: 20060218
  Serious: Yes (Hospitalization)
  Sender: FDA-Public Use
  Company Number: NL-AMGEN-UK140364

PATIENT
  Sex: Female

DRUGS (4)
  1. NEULASTA [Suspect]
     Indication: CHEMOTHERAPY
     Route: 058
     Dates: start: 20050619, end: 20050619
  2. CISPLATIN [Concomitant]
     Route: 042
  3. ETOPOSIDE [Concomitant]
     Route: 042
  4. DEXAMETASON [Concomitant]
     Route: 065

REACTIONS (2)
  - BACK PAIN [None]
  - CHEST PAIN [None]
